FAERS Safety Report 25188717 (Version 1)
Quarter: 2025Q2

REPORT INFORMATION
  Report Type: Spontaneous
  Country: US (occurrence: None)
  Receive Date: 20250410
  Receipt Date: 20250410
  Transmission Date: 20250717
  Serious: Yes (Hospitalization)
  Sender: FDA-CTU
  Company Number: None

PATIENT
  Age: 71 Year
  Sex: Female

DRUGS (2)
  1. TADALAFIL [Suspect]
     Active Substance: TADALAFIL
     Indication: Pulmonary arterial hypertension
     Dosage: 20 MG DAILY ORAL
     Route: 048
     Dates: start: 20220921
  2. TYVASO [Suspect]
     Active Substance: TREPROSTINIL

REACTIONS (5)
  - Oedema [None]
  - Dyspnoea [None]
  - Device power source issue [None]
  - Therapy interrupted [None]
  - Device malfunction [None]

NARRATIVE: CASE EVENT DATE: 20250325
